FAERS Safety Report 4683991-3 (Version None)
Quarter: 2005Q2

REPORT INFORMATION
  Report Type: 
  Country: None (occurrence: None)
  Receive Date: 20050602
  Receipt Date: 20050215
  Transmission Date: 20051028
  Serious: No
  Sender: FDA-Public Use
  Company Number: MPS1-10325

PATIENT
  Age: 8 Year
  Sex: Female
  Weight: 16.2 kg

DRUGS (3)
  1. ALDURAZYME [Suspect]
     Indication: MUCOPOLYSACCHARIDOSIS I
     Dosage: 11.6 MG QWK IV
     Route: 042
     Dates: start: 20040501
  2. TYLENOL (CAPLET) [Concomitant]
  3. BENADRYL [Concomitant]

REACTIONS (7)
  - CHILLS [None]
  - EAR INFECTION [None]
  - HEART RATE INCREASED [None]
  - OXYGEN SATURATION DECREASED [None]
  - PYREXIA [None]
  - UPPER RESPIRATORY TRACT INFECTION [None]
  - WHEEZING [None]
